FAERS Safety Report 5411747-2 (Version None)
Quarter: 2007Q3

REPORT INFORMATION
  Report Type: 
  Country: None (occurrence: None)
  Receive Date: 20070813
  Receipt Date: 20070810
  Transmission Date: 20080115
  Serious: Yes (Death, Other)
  Sender: FDA-Public Use
  Company Number: PHNU2007DE02800

PATIENT
  Sex: Female

DRUGS (2)
  1. ZOMETA [Suspect]
     Indication: MULTIPLE MYELOMA
     Dosage: 4 MG, QD
     Route: 042
     Dates: start: 20020604
  2. IBANDRONATE [Suspect]
     Indication: MULTIPLE MYELOMA
     Dosage: 3 MG, QD
     Route: 042
     Dates: start: 20010101

REACTIONS (8)
  - GENERAL PHYSICAL CONDITION ABNORMAL [None]
  - IMPAIRED HEALING [None]
  - JAW DISORDER [None]
  - OPEN WOUND [None]
  - OSTEONECROSIS [None]
  - PURULENCE [None]
  - TOOTH EXTRACTION [None]
  - X-RAY DENTAL [None]
